FAERS Safety Report 9190693 (Version 3)
Quarter: 2013Q2

REPORT INFORMATION
  Report Type: Report from Study
  Country: US (occurrence: US)
  Receive Date: 20130326
  Receipt Date: 20130418
  Transmission Date: 20140414
  Serious: Yes (Death, Hospitalization)
  Sender: FDA-Public Use
  Company Number: US-ACTELION-A-NJ2013-80929

PATIENT
  Age: 67 Year
  Sex: Female

DRUGS (1)
  1. TRACLEER [Suspect]
     Indication: PULMONARY ARTERIAL HYPERTENSION
     Dosage: UNK
     Route: 048

REACTIONS (3)
  - Death [Fatal]
  - Neoplasm malignant [Not Recovered/Not Resolved]
  - Small intestinal haemorrhage [Not Recovered/Not Resolved]
